FAERS Safety Report 17657053 (Version 1)
Quarter: 2020Q2

REPORT INFORMATION
  Report Type: Spontaneous
  Country: SE (occurrence: SE)
  Receive Date: 20200410
  Receipt Date: 20200410
  Transmission Date: 20200713
  Serious: Yes (Life-Threatening, Hospitalization, Other)
  Sender: FDA-Public Use
  Company Number: SE-PFM-2020-03836

PATIENT

DRUGS (5)
  1. AMLODIPINE [Suspect]
     Active Substance: AMLODIPINE BESYLATE
     Indication: INTENTIONAL OVERDOSE
     Dosage: 350 MG, UNK
     Route: 048
  2. INSULIN [Suspect]
     Active Substance: INSULIN NOS
     Indication: CARDIAC DYSFUNCTION
     Dosage: LOADING DOSE: 1 U/KG FOLLOWED BY AN INITIAL INFUSION RATE OF 1 U/KG/H, 5 U/KG/H AND THEN 10 U/KG/H
     Route: 050
  3. GLUCOSE [Concomitant]
     Active Substance: DEXTROSE
     Indication: PRODUCT USED FOR UNKNOWN INDICATION
     Dosage: UNK
     Route: 050
  4. PROPRANOLOL [Suspect]
     Active Substance: PROPRANOLOL HYDROCHLORIDE
     Indication: INTENTIONAL OVERDOSE
     Dosage: UNK
     Route: 048
  5. CANDESARTAN. [Concomitant]
     Active Substance: CANDESARTAN
     Indication: DIABETES MELLITUS MANAGEMENT
     Dosage: UNK
     Route: 048

REACTIONS (4)
  - Non-cardiogenic pulmonary oedema [Recovered/Resolved]
  - Toxicity to various agents [Recovered/Resolved]
  - Cardiac dysfunction [Recovered/Resolved]
  - Intentional overdose [Unknown]
